FAERS Safety Report 5593184-3 (Version None)
Quarter: 2008Q1

REPORT INFORMATION
  Report Type: 
  Country: None (occurrence: None)
  Receive Date: 20080115
  Receipt Date: 20080115
  Transmission Date: 20080703
  Serious: Yes (Hospitalization)
  Sender: FDA-Public Use
  Company Number: None

PATIENT
  Sex: Female
  Weight: 89.3 kg

DRUGS (4)
  1. TACROLIMUS [Suspect]
     Dosage: 78 MG  1.5 MG PO BID STARTING ON DAY -1 OF ALLOGENEIC TRANSPLANT
     Route: 048
  2. CYCLOPHOSPHAMIDE [Suspect]
     Dosage: 3320 MG 1660 MG Q DAY X 2 DAYS ON DAY -4 AND DAY -3 OF ALLOGENEIC TRANSPLANT
  3. FLUDARABINE PHOSPHATE [Suspect]
     Dosage: 250 MG   50 MG Q DAY X 5 DAYS ON DAY -7 THRU DAY -3 OF ALLOGENEIC TRANSPLANT
  4. MELPHALAN [Suspect]
     Dosage: 330 MG  ON DAY -2 OF AUTOLOGOUS TRANSPLANT

REACTIONS (6)
  - DIARRHOEA [None]
  - DRUG LEVEL INCREASED [None]
  - DRUG TOXICITY [None]
  - NAUSEA [None]
  - RENAL FAILURE ACUTE [None]
  - VOMITING [None]
